FAERS Safety Report 4462979-1 (Version None)
Quarter: 2004Q3

REPORT INFORMATION
  Report Type: 
  Country: None (occurrence: None)
  Receive Date: 20040927
  Receipt Date: 20040908
  Transmission Date: 20050211
  Serious: Yes (Other)
  Sender: FDA-Public Use
  Company Number: 6010491

PATIENT
  Age: 71 Year
  Sex: Male

DRUGS (1)
  1. METFORMIN HCL [Suspect]
     Indication: DRUG USE FOR UNKNOWN INDICATION
     Dosage: 1000,0 MG (1000 MG, 1 IN 1 D) , ORAL
     Route: 048
     Dates: start: 20031101

REACTIONS (4)
  - GENERALISED ERYTHEMA [None]
  - PHARMACEUTICAL PRODUCT COMPLAINT [None]
  - RASH PRURITIC [None]
  - SKIN REACTION [None]
